FAERS Safety Report 25321609 (Version 3)
Quarter: 2025Q3

REPORT INFORMATION
  Report Type: Spontaneous
  Country: US (occurrence: US)
  Receive Date: 20250516
  Receipt Date: 20250902
  Transmission Date: 20251020
  Serious: Yes (Death, Life-Threatening, Hospitalization, Other)
  Sender: ALKEM
  Company Number: None

PATIENT
  Age: 8 Decade
  Sex: Female

DRUGS (4)
  1. MYCOPHENOLATE MOFETIL [Suspect]
     Active Substance: MYCOPHENOLATE MOFETIL
     Indication: Immunosuppressant drug therapy
     Dosage: 150 MILLIGRAM, BID (EVERY 12 HOUR)
     Route: 065
  2. TACROLIMUS [Suspect]
     Active Substance: TACROLIMUS
     Indication: Immunosuppressant drug therapy
     Dosage: 3 MILLIGRAM, BID (EVERY 12 HOUR)
     Route: 065
  3. PREDNISONE [Suspect]
     Active Substance: PREDNISONE
     Indication: Immunosuppressant drug therapy
     Dosage: 8 MILLIGRAM, QD (EVERY 1 DAY)
     Route: 065
  4. PREDNISONE [Suspect]
     Active Substance: PREDNISONE
     Indication: Diffuse large B-cell lymphoma
     Route: 065

REACTIONS (13)
  - Diffuse large B-cell lymphoma [Fatal]
  - Distributive shock [Fatal]
  - Large intestinal obstruction [Unknown]
  - Cytokine storm [Unknown]
  - Immunosuppressant drug level increased [Unknown]
  - Acute respiratory distress syndrome [Unknown]
  - Atrial fibrillation [Unknown]
  - Epstein-Barr virus associated lymphoma [Fatal]
  - Post transplant lymphoproliferative disorder [Fatal]
  - Disease progression [Unknown]
  - Transplant rejection [Unknown]
  - Sepsis [Unknown]
  - Haematological infection [Unknown]
